FAERS Safety Report 8285048-1 (Version None)
Quarter: 2012Q2

REPORT INFORMATION
  Report Type: 
  Country: None (occurrence: None)
  Receive Date: 20120413
  Receipt Date: 20111101
  Transmission Date: 20120825
  Serious: No
  Sender: FDA-Public Use
  Company Number: US-ASTRAZENECA-2011SE66086

PATIENT
  Sex: Female

DRUGS (3)
  1. NEXIUM [Suspect]
     Dosage: 1 NEXIUM A DAY
     Route: 048
  2. NEXIUM [Suspect]
     Dosage: 2 NEXIUM PER DAY
     Route: 048
  3. NEXIUM [Suspect]
     Route: 048

REACTIONS (8)
  - RETCHING [None]
  - HEPATIC PAIN [None]
  - ABDOMINAL PAIN [None]
  - VOMITING [None]
  - THERAPEUTIC RESPONSE DECREASED [None]
  - PAIN [None]
  - ANGINA PECTORIS [None]
  - RENAL PAIN [None]
